FAERS Safety Report 11890489 (Version 1)
Quarter: 2016Q1

REPORT INFORMATION
  Report Type: Spontaneous
  Country: DE (occurrence: DE)
  Receive Date: 20160105
  Receipt Date: 20160105
  Transmission Date: 20160526
  Serious: Yes (Other)
  Sender: FDA-Public Use
  Company Number: DE-NGX_01742_2013

PATIENT
  Sex: Female

DRUGS (2)
  1. QUTENZA [Suspect]
     Active Substance: CAPSAICIN
     Dosage: UNK UNK, UNKNOWN FREQ
     Route: 061
  2. QUTENZA [Suspect]
     Active Substance: CAPSAICIN
     Indication: NEURALGIA
     Dosage: UNK UNK, UNKNOWN FREQ
     Route: 061

REACTIONS (1)
  - Epidermolysis [Recovered/Resolved]
